FAERS Safety Report 4849536-X (Version None)
Quarter: 2005Q4

REPORT INFORMATION
  Report Type: 
  Country: None (occurrence: None)
  Receive Date: 20051207
  Receipt Date: 20051125
  Transmission Date: 20060501
  Serious: Yes (Hospitalization)
  Sender: FDA-Public Use
  Company Number: 2005JP002299

PATIENT
  Age: 60 Year
  Sex: Male

DRUGS (2)
  1. FUNGUARD (MICAFUNGIN) INJECTION [Suspect]
     Indication: ASPERGILLOMA
     Dosage: 300 MG, UID/QD, IV DRIP
     Route: 041
     Dates: start: 20051001, end: 20051101
  2. ITRIZOLE (ITRACONAZOLE) PER ORAL NOS [Suspect]
     Dosage: 200 MG, /D, ORAL
     Route: 048
     Dates: start: 20051001, end: 20051101

REACTIONS (1)
  - CRYPTOGENIC ORGANIZING PNEUMONIA [None]
